FAERS Safety Report 4639803-7 (Version None)
Quarter: 2005Q2

REPORT INFORMATION
  Report Type: 
  Country: None (occurrence: None)
  Receive Date: 20050415
  Receipt Date: 20050309
  Transmission Date: 20051028
  Serious: Yes (Hospitalization)
  Sender: FDA-Public Use
  Company Number: WAES 0504USA00574

PATIENT
  Age: 74 Year
  Sex: Female

DRUGS (2)
  1. DECADRON [Suspect]
     Indication: INTRACRANIAL PRESSURE INCREASED
     Dosage: 2 MG/DAILY
     Route: 048
     Dates: start: 20041112, end: 20050203
  2. CAP TEMODAL (TEMOZOLOMIDE) [Suspect]
     Indication: METASTATIC BRONCHIAL CARCINOMA
     Dosage: 250 MG/DAILY
     Route: 048
     Dates: start: 20050112, end: 20050116

REACTIONS (1)
  - PHLEBOTHROMBOSIS [None]
